FAERS Safety Report 24882516 (Version 1)
Quarter: 2025Q1

REPORT INFORMATION
  Report Type: Spontaneous
  Country: US (occurrence: None)
  Receive Date: 20250123
  Receipt Date: 20250123
  Transmission Date: 20250409
  Serious: No
  Sender: FDA-CTU
  Company Number: None

PATIENT
  Age: 70 Year
  Sex: Male
  Weight: 95.25 kg

DRUGS (17)
  1. RANOLAZINE HYDROCHLORIDE [Suspect]
     Active Substance: RANOLAZINE HYDROCHLORIDE
     Indication: Angina pectoris
     Dosage: OTHER QUANTITY : 1 DOSAGE ;?FREQUENCY : TWICE A DAY;?
     Route: 048
     Dates: start: 20231111, end: 20241111
  2. SYMBICORT [Concomitant]
     Active Substance: BUDESONIDE\FORMOTEROL FUMARATE DIHYDRATE
  3. CELECOXIB [Concomitant]
     Active Substance: CELECOXIB
  4. Clonaze Pam [Concomitant]
  5. PLAVIX [Concomitant]
     Active Substance: CLOPIDOGREL BISULFATE
  6. FLEXERIL [Concomitant]
     Active Substance: CYCLOBENZAPRINE HYDROCHLORIDE
  7. ELIQUIS [Concomitant]
     Active Substance: APIXABAN
  8. FENOFIBRATE [Concomitant]
     Active Substance: FENOFIBRATE
  9. LANSOPRAZOLE [Concomitant]
     Active Substance: LANSOPRAZOLE
  10. HYDROCHLOROTHIAZIDE\LOSARTAN [Concomitant]
     Active Substance: HYDROCHLOROTHIAZIDE\LOSARTAN
  11. METFORMIN [Concomitant]
     Active Substance: METFORMIN HYDROCHLORIDE
  12. Repatha Sureclock [Concomitant]
  13. TYLENOL ARTHRITIS PAIN [Concomitant]
     Active Substance: ACETAMINOPHEN
  14. Multi-Vitamins [Concomitant]
  15. VITAMIN B12 [Concomitant]
     Active Substance: CYANOCOBALAMIN
  16. METAMUCIL [Concomitant]
     Active Substance: PLANTAGO SEED
  17. VITAMIN D3 [Concomitant]
     Active Substance: CHOLECALCIFEROL

REACTIONS (13)
  - Flushing [None]
  - Rash [None]
  - Eye irritation [None]
  - Swelling [None]
  - Swelling face [None]
  - Eye inflammation [None]
  - Eye swelling [None]
  - Urticaria [None]
  - Oropharyngeal pain [None]
  - Blepharitis [None]
  - Pruritus [None]
  - Pruritus [None]
  - Anxiety [None]

NARRATIVE: CASE EVENT DATE: 20241010
